FAERS Safety Report 20660181 (Version 1)
Quarter: 2022Q1

REPORT INFORMATION
  Report Type: Spontaneous
  Country: FR (occurrence: FR)
  Receive Date: 20220331
  Receipt Date: 20220331
  Transmission Date: 20220424
  Serious: Yes (Other)
  Sender: FDA-Public Use
  Company Number: None

PATIENT
  Age: 24 Month
  Sex: Male

DRUGS (2)
  1. ZOLOFT [Suspect]
     Active Substance: SERTRALINE HYDROCHLORIDE
     Dosage: AT LEAST 250 MG IN EVENING
     Route: 048
  2. ATARAX [Suspect]
     Active Substance: HYDROXYZINE HYDROCHLORIDE
     Dosage: AT LEAST 150MG PER DAY
     Route: 048

REACTIONS (3)
  - Drug use disorder [Not Recovered/Not Resolved]
  - Overdose [Unknown]
  - Off label use [Unknown]
